FAERS Safety Report 7145351-5 (Version None)
Quarter: 2010Q4

REPORT INFORMATION
  Report Type: 
  Country: None (occurrence: None)
  Receive Date: 20101208
  Receipt Date: 20101202
  Transmission Date: 20110411
  Serious: Yes (Hospitalization, Disabling, Other)
  Sender: FDA-Public Use
  Company Number: US-B.I. PHARMACEUTICALS,INC./RIDGEFIELD-2008-BP-17449BP

PATIENT
  Sex: Male

DRUGS (8)
  1. SPIRIVA [Suspect]
     Indication: CHRONIC OBSTRUCTIVE PULMONARY DISEASE
     Dosage: 18 MCG
     Route: 055
     Dates: start: 20070101
  2. ADVAIR [Concomitant]
     Indication: CHRONIC OBSTRUCTIVE PULMONARY DISEASE
     Route: 055
     Dates: start: 20041126
  3. ALDACTAZIDE [Concomitant]
     Indication: HYPERTENSION
     Route: 048
  4. LEVOXYL/THYROXINE [Concomitant]
     Indication: HYPOTHYROIDISM
     Route: 048
     Dates: start: 20060101
  5. MAGNESIUM [Concomitant]
     Route: 048
  6. SPIRONOLACTONE [Concomitant]
     Indication: HYPERTENSION
  7. PROSTATE MED [Concomitant]
  8. ASPIRIN [Concomitant]
     Indication: PROPHYLAXIS

REACTIONS (12)
  - ABASIA [None]
  - BENIGN PROSTATIC HYPERPLASIA [None]
  - CELLULITIS [None]
  - COLON CANCER [None]
  - DYSPNOEA [None]
  - FATIGUE [None]
  - OEDEMA PERIPHERAL [None]
  - POLLAKIURIA [None]
  - PROSTATOMEGALY [None]
  - WEIGHT INCREASED [None]
  - WOUND [None]
  - WOUND SECRETION [None]
